FAERS Safety Report 5613308-9 (Version None)
Quarter: 2008Q1

REPORT INFORMATION
  Report Type: 
  Country: None (occurrence: None)
  Receive Date: 20080129
  Receipt Date: 20080117
  Transmission Date: 20080703
  Serious: Yes (Other)
  Sender: FDA-Public Use
  Company Number: GXKR2008GB00902

PATIENT
  Age: 69 Year
  Sex: Female
  Weight: 60 kg

DRUGS (4)
  1. FLUOXETINE [Suspect]
     Indication: DEPRESSION
     Dosage: 20 MG, ORAL
     Route: 048
     Dates: start: 20071210, end: 20080107
  2. FLUOXETINE [Concomitant]
  3. LEVOTHYROXINE SODIUM [Concomitant]
  4. ZOPICLONE (ZOPICLONE) [Concomitant]

REACTIONS (2)
  - PARKINSON'S DISEASE [None]
  - TARDIVE DYSKINESIA [None]
